FAERS Safety Report 7773796 (Version 3)
Quarter: 2013Q1

REPORT INFORMATION
  Report Type: Report from Study
  Country: JP (occurrence: JP)
  Receive Date: 20110125
  Receipt Date: 20130222
  Transmission Date: 20140127
  Serious: Yes (Hospitalization)
  Sender: FDA-Public Use
  Company Number: JP-ABBOTT-11P-087-0699848-00

PATIENT
  Age: 30 Year
  Sex: Male

DRUGS (20)
  1. KALETRA [Suspect]
     Indication: HIV INFECTION
     Route: 048
     Dates: start: 20091204
  2. VALIXA [Suspect]
     Indication: CYTOMEGALOVIRUS CHORIORETINITIS
     Route: 048
     Dates: start: 20100215
  3. ZITHROMAC [Suspect]
     Indication: OPPORTUNISTIC INFECTION PROPHYLAXIS
     Dates: start: 20091214
  4. MYCOBUTIN [Suspect]
     Indication: PERICARDITIS TUBERCULOUS
     Route: 048
     Dates: start: 20091204
  5. MYCOBUTIN [Suspect]
     Indication: LYMPH NODE TUBERCULOSIS
  6. TRUVADA [Suspect]
     Route: 048
     Dates: start: 20091204
  7. DAIPHEN [Concomitant]
     Indication: PNEUMOCYSTIS JIROVECII PNEUMONIA
     Route: 048
     Dates: start: 20090828, end: 20110417
  8. DAIPHEN [Concomitant]
     Indication: PROPHYLAXIS
  9. MIGLITOL [Concomitant]
     Indication: TYPE 2 DIABETES MELLITUS
     Dates: start: 20090926
  10. MIGLITOL [Concomitant]
     Dosage: 50-75 MG X 3 TIMES/DAY
     Dates: start: 20110418
  11. ISCOTIN [Concomitant]
     Indication: PERICARDITIS TUBERCULOUS
     Dates: start: 20090831
  12. ISCOTIN [Concomitant]
     Indication: LYMPH NODE TUBERCULOSIS
  13. EBUTOL [Concomitant]
     Indication: PERICARDITIS TUBERCULOUS
     Dates: start: 20090831
  14. EBUTOL [Concomitant]
     Indication: LYMPH NODE TUBERCULOSIS
  15. PYDOXAL [Concomitant]
     Indication: PERICARDITIS TUBERCULOUS
     Dates: start: 20090831
  16. PYDOXAL [Concomitant]
     Indication: LYMPH NODE TUBERCULOSIS
  17. DIGOXIN [Concomitant]
     Indication: ATRIAL FIBRILLATION
     Dates: start: 20091005
  18. DIGOXIN [Concomitant]
     Indication: CARDIAC FAILURE
  19. RENIVACE [Concomitant]
     Indication: ATRIAL FIBRILLATION
     Dates: start: 20090903
  20. RENIVACE [Concomitant]
     Indication: CARDIAC FAILURE

REACTIONS (3)
  - Cytomegalovirus chorioretinitis [Not Recovered/Not Resolved]
  - Immune reconstitution inflammatory syndrome [Not Recovered/Not Resolved]
  - Gamma-glutamyltransferase increased [Not Recovered/Not Resolved]
